FAERS Safety Report 13961766 (Version 2)
Quarter: 2017Q4

REPORT INFORMATION
  Report Type: Spontaneous
  Country: US (occurrence: US)
  Receive Date: 20170912
  Receipt Date: 20171221
  Transmission Date: 20180320
  Serious: Yes (Hospitalization)
  Sender: FDA-Public Use
  Company Number: US-VERTEX PHARMACEUTICALS-2017-004921

PATIENT
  Age: 17 Year
  Sex: Male
  Weight: 65 kg

DRUGS (10)
  1. PRILOSEC [Concomitant]
     Active Substance: OMEPRAZOLE MAGNESIUM
  2. ALBUTEROL                          /00139501/ [Concomitant]
     Active Substance: ALBUTEROL
  3. ACIDOPHILUS [Concomitant]
     Active Substance: LACTOBACILLUS ACIDOPHILUS
  4. PULMICORT TURBUHALER [Concomitant]
     Active Substance: BUDESONIDE
  5. ZITHROMAX [Concomitant]
     Active Substance: AZITHROMYCIN DIHYDRATE
  6. TOBI [Concomitant]
     Active Substance: TOBRAMYCIN
  7. COMPLETE FORMULATION [Concomitant]
  8. KALYDECO [Suspect]
     Active Substance: IVACAFTOR
     Indication: CYSTIC FIBROSIS
     Dosage: 1 TAB, BID
     Route: 048
     Dates: start: 201202
  9. CREON [Concomitant]
     Active Substance: PANCRELIPASE AMYLASE\PANCRELIPASE LIPASE\PANCRELIPASE PROTEASE
  10. PULMOZYME [Concomitant]
     Active Substance: DORNASE ALFA

REACTIONS (3)
  - Blood pressure increased [Recovered/Resolved]
  - Polypectomy [Recovered/Resolved]
  - Nasal septal operation [Recovered/Resolved]

NARRATIVE: CASE EVENT DATE: 20170828
